FAERS Safety Report 16277876 (Version 2)
Quarter: 2019Q2

REPORT INFORMATION
  Report Type: Report from Study
  Country: US (occurrence: US)
  Receive Date: 20190506
  Receipt Date: 20190528
  Transmission Date: 20190711
  Serious: Yes (Hospitalization)
  Sender: FDA-Public Use
  Company Number: US-EXELIXIS-CABO-19020357

PATIENT
  Age: 56 Year
  Sex: Male
  Weight: 75.74 kg

DRUGS (2)
  1. CABOMETYX [Suspect]
     Active Substance: CABOZANTINIB S-MALATE
     Indication: RENAL CELL CARCINOMA
     Dosage: 40 MG, QD (WITHOUT FOOD)
     Dates: start: 20190403, end: 20190415
  2. CABOMETYX [Suspect]
     Active Substance: CABOZANTINIB S-MALATE
     Dosage: 40 MG, QD (WITHOUT FOOD)
     Dates: start: 20190419

REACTIONS (7)
  - Abdominal pain lower [Not Recovered/Not Resolved]
  - Somnolence [Not Recovered/Not Resolved]
  - Pleural effusion [Recovered/Resolved]
  - Plicated tongue [Not Recovered/Not Resolved]
  - Dyspnoea [Not Recovered/Not Resolved]
  - Stomatitis [Not Recovered/Not Resolved]
  - Back pain [Not Recovered/Not Resolved]

NARRATIVE: CASE EVENT DATE: 201904
